FAERS Safety Report 7327222-4 (Version None)
Quarter: 2011Q1

REPORT INFORMATION
  Report Type: 
  Country: None (occurrence: None)
  Receive Date: 20110302
  Receipt Date: 20110228
  Transmission Date: 20110831
  Serious: Yes (Life-Threatening, Hospitalization, Disabling, Other)
  Sender: FDA-Public Use
  Company Number: JP-PFIZER INC-2011025270

PATIENT
  Age: 45 Year
  Sex: Male
  Weight: 57.5 kg

DRUGS (17)
  1. TEMSIROLIMUS [Suspect]
     Indication: RENAL CELL CARCINOMA
     Dosage: 25 MG, WEEKLY
     Route: 041
     Dates: start: 20110105, end: 20110105
  2. TEMSIROLIMUS [Suspect]
     Dosage: 25 MG, WEEKLY
     Dates: start: 20110119, end: 20110119
  3. GASTER [Concomitant]
     Indication: PROPHYLAXIS
     Dosage: 20 MG, 1X/DAY
     Route: 048
     Dates: end: 20110131
  4. THYRADIN S [Concomitant]
     Dosage: 25 UG, 1X/DAY
     Route: 048
     Dates: end: 20100106
  5. TEMSIROLIMUS [Suspect]
     Dosage: 25 MG, WEEKLY
     Dates: start: 20110126, end: 20110126
  6. FENTANYL [Concomitant]
     Dosage: 16.8 MG EVERY 3 DAYS
     Route: 061
     Dates: end: 20110115
  7. FENTANYL [Concomitant]
     Dosage: 4.2 MG EVERY 3 DAYS
     Route: 061
     Dates: end: 20110106
  8. PRIMPERAN TAB [Concomitant]
     Indication: PROPHYLAXIS
     Dosage: 5 MG, 3X/DAY
     Route: 048
     Dates: end: 20110131
  9. RESTAMIN [Concomitant]
     Indication: PROPHYLAXIS
     Dosage: 50 MG, 1X/DAY
     Route: 048
  10. LASIX [Concomitant]
     Dosage: 40 MG, 2X/DAY
     Route: 048
     Dates: end: 20110121
  11. LOXONIN [Concomitant]
     Dosage: 60 MG, 3X/DAY
     Route: 048
     Dates: end: 20110131
  12. FENTANYL [Concomitant]
     Dosage: 2.1 MG EVERY 3 DAYS
     Route: 061
     Dates: start: 20110106, end: 20110121
  13. ALDACTONE [Concomitant]
     Dosage: 25 MG, 1X/DAY
     Route: 048
     Dates: end: 20110131
  14. LASIX [Concomitant]
     Dosage: 40 MG, 1X/DAY
     Route: 048
     Dates: start: 20110122, end: 20110131
  15. TEMSIROLIMUS [Suspect]
     Dosage: 25 MG, WEEKLY
     Dates: start: 20110112, end: 20110112
  16. LYRICA [Concomitant]
     Dosage: 75 MG, 2X/DAY
     Route: 048
     Dates: end: 20110131
  17. MAGNESIUM OXIDE [Concomitant]
     Indication: PROPHYLAXIS
     Dosage: 660 MG, 3X/DAY
     Route: 048
     Dates: end: 20110114

REACTIONS (5)
  - DIPLOPIA [None]
  - PLEURAL EFFUSION [None]
  - DYSPNOEA [None]
  - METASTASES TO CENTRAL NERVOUS SYSTEM [None]
  - LOSS OF CONSCIOUSNESS [None]
